FAERS Safety Report 4712047-6 (Version None)
Quarter: 2005Q3

REPORT INFORMATION
  Report Type: 
  Country: None (occurrence: None)
  Receive Date: 20050712
  Receipt Date: 20050701
  Transmission Date: 20060218
  Serious: Yes (Other)
  Sender: FDA-Public Use
  Company Number: BR-JNJFOC-20050604968

PATIENT
  Age: 76 Year
  Sex: Male

DRUGS (9)
  1. REMINYL [Suspect]
     Route: 065
  2. REMINYL [Suspect]
     Route: 065
  3. REMINYL [Suspect]
     Route: 065
  4. REMINYL [Suspect]
     Route: 065
  5. PLAVIX [Concomitant]
     Route: 065
  6. VITAMIN E [Concomitant]
     Route: 065
  7. GINKGO BILOBA [Concomitant]
     Route: 065
  8. ENALAPRIL MALEATE [Concomitant]
     Route: 065
  9. SINVASTATIN [Concomitant]
     Route: 065

REACTIONS (1)
  - HEPATITIS [None]
